FAERS Safety Report 6145011-3 (Version None)
Quarter: 2009Q2

REPORT INFORMATION
  Report Type: 
  Country: None (occurrence: None)
  Receive Date: 20090406
  Receipt Date: 20090324
  Transmission Date: 20091009
  Serious: Yes (Other)
  Sender: FDA-Public Use
  Company Number: MX-ELI_LILLY_AND_COMPANY-MX200903006551

PATIENT
  Age: 71 Year
  Sex: Male

DRUGS (2)
  1. OLANZAPINE + FLUOXETINE HCL [Suspect]
     Indication: DEPRESSION
     Dosage: 12 MG, DAILY (1/D)
     Route: 048
     Dates: start: 20081201, end: 20090301
  2. OLANZAPINE + FLUOXETINE HCL [Suspect]
     Dosage: 50 MG, DAILY (1/D)
     Route: 048
     Dates: start: 20081201, end: 20090301

REACTIONS (1)
  - PARKINSONISM [None]
